FAERS Safety Report 17037908 (Version 1)
Quarter: 2019Q4

REPORT INFORMATION
  Report Type: Spontaneous
  Country: US (occurrence: US)
  Receive Date: 20191115
  Receipt Date: 20191115
  Transmission Date: 20200122
  Serious: No
  Sender: FDA-Public Use
  Company Number: US-009507513-1910USA013305

PATIENT
  Age: 58 Year
  Sex: Male

DRUGS (6)
  1. SINEMET [Suspect]
     Active Substance: CARBIDOPA\LEVODOPA
     Indication: PARKINSON^S DISEASE
     Dosage: 25 TO 100 MG TWO TABLETS FOUR TIMES A DAY AND THREE TABLETS EVERY NIGHT AT BEDTIME
     Route: 048
  2. DROXIDOPA [Interacting]
     Active Substance: DROXIDOPA
     Dosage: 200 MILLIGRAM, BID
  3. ROPINIROLE HYDROCHLORIDE. [Suspect]
     Active Substance: ROPINIROLE HYDROCHLORIDE
     Dosage: 4 MILLIGRAM, QD
  4. ENTACAPONE. [Suspect]
     Active Substance: ENTACAPONE
     Dosage: 200 MILLIGRAM, TID
  5. DROXIDOPA [Interacting]
     Active Substance: DROXIDOPA
     Indication: ORTHOSTATIC HYPOTENSION
     Dosage: 100 MILLIGRAM, BID
  6. DROXIDOPA [Interacting]
     Active Substance: DROXIDOPA
     Dosage: 400 MILLIGRAM, TID

REACTIONS (6)
  - Confusional state [Recovered/Resolved]
  - Drug interaction [Unknown]
  - Fear [Recovered/Resolved]
  - Agitation [Recovered/Resolved]
  - Mania [Recovered/Resolved]
  - Overdose [Unknown]
